FAERS Safety Report 22288272 (Version 1)
Quarter: 2023Q2

REPORT INFORMATION
  Report Type: Spontaneous
  Country: US (occurrence: US)
  Receive Date: 20230505
  Receipt Date: 20230505
  Transmission Date: 20230722
  Serious: No
  Sender: FDA-Public Use
  Company Number: US-BIOGEN-2023BI01203395

PATIENT
  Sex: Male

DRUGS (8)
  1. VUMERITY [Suspect]
     Active Substance: DIROXIMEL FUMARATE
     Indication: Multiple sclerosis
     Route: 050
     Dates: start: 20220108, end: 20230101
  2. TIZANIDINE [Concomitant]
     Active Substance: TIZANIDINE
     Route: 050
  3. Modanifil [Concomitant]
     Route: 050
  4. PREGABALIN [Concomitant]
     Active Substance: PREGABALIN
     Route: 050
  5. SUMATRIPTAN [Concomitant]
     Active Substance: SUMATRIPTAN
     Route: 050
  6. INDOMETHACIN [Concomitant]
     Active Substance: INDOMETHACIN
     Route: 050
  7. METOCLOPRAMIDE [Concomitant]
     Active Substance: METOCLOPRAMIDE
     Route: 050
  8. RIZATRIPTAN [Concomitant]
     Active Substance: RIZATRIPTAN
     Route: 050

REACTIONS (2)
  - Drug level increased [Recovered/Resolved]
  - Lymphadenopathy [Recovered/Resolved]

NARRATIVE: CASE EVENT DATE: 20220101
